FAERS Safety Report 20829973 (Version 1)
Quarter: 2022Q2

REPORT INFORMATION
  Report Type: Spontaneous
  Country: DK (occurrence: DK)
  Receive Date: 20220514
  Receipt Date: 20220514
  Transmission Date: 20220721
  Serious: Yes (Hospitalization)
  Sender: FDA-Public Use
  Company Number: None

PATIENT
  Age: 25 Year
  Sex: Female

DRUGS (5)
  1. PREDNISOLONE [Suspect]
     Active Substance: PREDNISOLONE
     Indication: Susac^s syndrome
     Dosage: DOSE BETWEEN 37.5-50MG.DOSE DECREASED TO 40MG APPROX 27FEB STRENGTH:UNKNOWN,UNIT DOSE 40MG,FREQUENCY
     Route: 048
     Dates: start: 201705, end: 201812
  2. PREDNISOLONE [Suspect]
     Active Substance: PREDNISOLONE
     Indication: Susac^s syndrome
     Dosage: DOSAGE: HIGH, INTERVAL UNKNOWN, STRENGTH: UNKNOWN, START DATE UNKNOWN BUT AFTER IV TREATMENT.
     Route: 042
     Dates: start: 201705, end: 201705
  3. MABTHERA [Suspect]
     Active Substance: RITUXIMAB
     Indication: Susac^s syndrome
     Dosage: DOSAGE: UNKNOWN DOSE TWICE A YEAR. ?STRENGTH: 1400MG
     Route: 058
     Dates: start: 20170911
  4. CELLCEPT [Suspect]
     Active Substance: MYCOPHENOLATE MOFETIL
     Indication: Susac^s syndrome
     Dosage: DOSE INCREASED IN JUN AND JUL. DOSE REDUCED FROM 3G TO 2G ON 03NOV. STRENGTH: UNKNOWN,UNIT DOSE 2G,F
     Route: 048
     Dates: start: 201705, end: 20171128
  5. CYCLOSPORINE [Suspect]
     Active Substance: CYCLOSPORINE
     Indication: Susac^s syndrome
     Dosage: NO OF SERARATE DOSAGES UNKNOWN. INCREASED FROM 200MG TIL 300MG ON 20DEC2017?STRENGTH: UNKNOWN,UNIT D
     Route: 048
     Dates: start: 20171128

REACTIONS (2)
  - Pneumocystis jirovecii pneumonia [Recovered/Resolved with Sequelae]
  - Dyspnoea [Unknown]

NARRATIVE: CASE EVENT DATE: 20180301
